FAERS Safety Report 23588067 (Version 2)
Quarter: 2024Q1

REPORT INFORMATION
  Report Type: Other
  Country: US (occurrence: None)
  Receive Date: 20240301
  Receipt Date: 20240304
  Transmission Date: 20240409
  Serious: No
  Sender: FDA-Public Use
  Company Number: US-ROCHE-3519165

PATIENT
  Age: 53 Year
  Sex: Female
  Weight: 88.53 kg

DRUGS (2)
  1. OCREVUS [Suspect]
     Active Substance: OCRELIZUMAB
     Indication: Relapsing multiple sclerosis
     Dosage: DATE OF TREATMENT: 16/JUL/2018 AND 30/JUL/2018
     Route: 065
  2. OCREVUS [Suspect]
     Active Substance: OCRELIZUMAB
     Dosage: DATE OF SERVICE: 11/APR/2022.
     Route: 042
     Dates: start: 20220411

REACTIONS (4)
  - Sinusitis [Recovered/Resolved]
  - Oral herpes [Recovered/Resolved]
  - COVID-19 [Recovered/Resolved]
  - Pharyngitis streptococcal [Recovered/Resolved]

NARRATIVE: CASE EVENT DATE: 20220411
